FAERS Safety Report 4973487-3 (Version None)
Quarter: 2006Q2

REPORT INFORMATION
  Report Type: 
  Country: None (occurrence: None)
  Receive Date: 20060407
  Receipt Date: 20060216
  Transmission Date: 20061013
  Serious: Yes (Death, Hospitalization)
  Sender: FDA-Public Use
  Company Number: STA-AE-06-010

PATIENT
  Age: 24 Year
  Sex: Female
  Weight: 55.9 kg

DRUGS (12)
  1. LORAZEPAM [Suspect]
     Indication: SEDATION
     Dosage: IV TITRATED
     Route: 042
  2. ERYTHROMYCIN [Concomitant]
  3. LEVOFLOXACIN [Concomitant]
  4. METHYLPREDNISOLONE [Concomitant]
  5. CISATRACURIUM IV [Concomitant]
  6. FENTANYL IV [Concomitant]
  7. AZITHROMYCIN [Concomitant]
  8. CEFTRIAXONE [Concomitant]
  9. VANCOMYCIN [Concomitant]
  10. FAMOTIDINE [Concomitant]
  11. HEPARIN [Concomitant]
  12. DOCUSATE [Concomitant]

REACTIONS (13)
  - AGITATION [None]
  - HYPOTENSION [None]
  - HYPOVENTILATION [None]
  - LACTIC ACIDOSIS [None]
  - METABOLIC ACIDOSIS [None]
  - METABOLIC ALKALOSIS [None]
  - PNEUMOTHORAX [None]
  - PYREXIA [None]
  - RESPIRATORY ACIDOSIS [None]
  - RESPIRATORY FAILURE [None]
  - TACHYCARDIA [None]
  - THERAPY NON-RESPONDER [None]
  - URINE OUTPUT DECREASED [None]
